FAERS Safety Report 14467606 (Version 3)
Quarter: 2023Q4

REPORT INFORMATION
  Report Type: Other
  Country: IE (occurrence: IE)
  Receive Date: 20180131
  Receipt Date: 20231212
  Transmission Date: 20240110
  Serious: Yes (Other)
  Sender: FDA-Public Use
  Company Number: IE-MACLEODS PHARMACEUTICALS US LTD-MAC2018008989

PATIENT

DRUGS (3)
  1. SILDENAFIL [Suspect]
     Active Substance: SILDENAFIL
     Indication: Pulmonary arterial pressure increased
     Dosage: UNK
     Route: 048
  2. BOSENTAN [Suspect]
     Active Substance: BOSENTAN
     Indication: Pulmonary arterial hypertension
     Dosage: UNK
     Route: 065
  3. BOSENTAN [Suspect]
     Active Substance: BOSENTAN
     Indication: Pulmonary arterial pressure increased

REACTIONS (2)
  - Endothelial dysfunction [Unknown]
  - Coronary artery disease [Unknown]
